FAERS Safety Report 5840342-6 (Version None)
Quarter: 2008Q3

REPORT INFORMATION
  Report Type: 
  Country: None (occurrence: None)
  Receive Date: 20080807
  Receipt Date: 20080807
  Transmission Date: 20090109
  Serious: Yes (Other)
  Sender: FDA-Public Use
  Company Number: None

PATIENT
  Sex: Female

DRUGS (10)
  1. REVLIMID [Suspect]
     Dosage: 15MG DAILY X21D/28D ORALLY
     Route: 048
     Dates: start: 20080214, end: 20080501
  2. DEXAMETHASONE TAB [Concomitant]
  3. WARFARIN SODIUM [Concomitant]
  4. METOPROLOL SUCCINATE [Concomitant]
  5. FUROSEMIDE [Concomitant]
  6. LISINOPRIL [Concomitant]
  7. LEVOXYL [Concomitant]
  8. FERROUS SULFATE TAB [Concomitant]
  9. FAMOTIDINE [Concomitant]
  10. PROTONIX [Concomitant]

REACTIONS (7)
  - DYSPNOEA [None]
  - FATIGUE [None]
  - GASTRITIS EROSIVE [None]
  - GASTROINTESTINAL HAEMORRHAGE [None]
  - HAEMORRHOIDS [None]
  - MALAISE [None]
  - PANCYTOPENIA [None]
